FAERS Safety Report 5968458-4 (Version None)
Quarter: 2008Q4

REPORT INFORMATION
  Report Type: 
  Country: None (occurrence: None)
  Receive Date: 20081121
  Receipt Date: 20081121
  Transmission Date: 20090506
  Serious: Yes (Other)
  Sender: FDA-Public Use
  Company Number: None

PATIENT
  Age: 65 Year
  Sex: Female
  Weight: 56.6996 kg

DRUGS (1)
  1. FOSAMAX [Suspect]
     Indication: OSTEOPENIA
     Dosage: ONE TABLET ONCE A WEEK
     Dates: start: 19970101, end: 20070701

REACTIONS (4)
  - ABDOMINAL DISCOMFORT [None]
  - ARTHRALGIA [None]
  - GASTROINTESTINAL PAIN [None]
  - MUCOUS MEMBRANE DISORDER [None]
